FAERS Safety Report 20432851 (Version 3)
Quarter: 2022Q1

REPORT INFORMATION
  Report Type: Spontaneous
  Country: US (occurrence: US)
  Receive Date: 20220205
  Receipt Date: 20220308
  Transmission Date: 20220423
  Serious: No
  Sender: FDA-Public Use
  Company Number: US-CELGENE-USA-20220107858

PATIENT
  Age: 60 Year
  Sex: Female

DRUGS (5)
  1. REVLIMID [Suspect]
     Active Substance: LENALIDOMIDE
     Indication: Plasma cell myeloma
     Route: 048
     Dates: start: 20190411
  2. REVLIMID [Suspect]
     Active Substance: LENALIDOMIDE
     Indication: Pulmonary arterial hypertension
     Dosage: 5 MILLIGRAM
     Route: 048
     Dates: start: 201912
  3. AMBRISENTAN [Suspect]
     Active Substance: AMBRISENTAN
     Indication: Pulmonary arterial hypertension
     Dosage: 5 MILLIGRAM
     Route: 048
     Dates: start: 20211115
  4. AMBRISENTAN [Suspect]
     Active Substance: AMBRISENTAN
     Indication: Pulmonary hypertension
     Dosage: 20 MILLIGRAM
     Route: 048
     Dates: start: 20211118
  5. AMBRISENTAN [Suspect]
     Active Substance: AMBRISENTAN
     Indication: Plasma cell myeloma

REACTIONS (4)
  - Eye disorder [Recovering/Resolving]
  - Dyspnoea [Unknown]
  - Depression [Unknown]
  - Back pain [Unknown]

NARRATIVE: CASE EVENT DATE: 20220110
